FAERS Safety Report 7060292-X (Version None)
Quarter: 2010Q4

REPORT INFORMATION
  Report Type: 
  Country: None (occurrence: None)
  Receive Date: 20101025
  Receipt Date: 20101020
  Transmission Date: 20110411
  Serious: Yes (Hospitalization)
  Sender: FDA-Public Use
  Company Number: A0800188A

PATIENT
  Sex: Female

DRUGS (1)
  1. AVANDIA [Suspect]
     Indication: DIABETES MELLITUS
     Dosage: 4MG TWICE PER DAY
     Route: 048
     Dates: start: 20020101, end: 20030101

REACTIONS (9)
  - ANAEMIA [None]
  - CARDIAC FAILURE CONGESTIVE [None]
  - CONDITION AGGRAVATED [None]
  - HAEMODIALYSIS [None]
  - HYPOTENSION [None]
  - PROTEINURIA [None]
  - RENAL FAILURE [None]
  - RENAL FAILURE CHRONIC [None]
  - SWELLING [None]
